FAERS Safety Report 22542148 (Version 2)
Quarter: 2023Q2

REPORT INFORMATION
  Report Type: Spontaneous
  Country: JP (occurrence: JP)
  Receive Date: 20230609
  Receipt Date: 20230615
  Transmission Date: 20230721
  Serious: Yes (Other)
  Sender: FDA-Public Use
  Company Number: JP-BRISTOL-MYERS SQUIBB COMPANY-2023-080663

PATIENT
  Age: 48 Year
  Sex: Female

DRUGS (2)
  1. TRIAMCINOLONE ACETONIDE [Suspect]
     Active Substance: TRIAMCINOLONE ACETONIDE
     Indication: Tenosynovitis
     Dosage: 3 CC, ONCE ONLY, LOCAL INJECTION IN TENDON SHEATH
     Route: 050
     Dates: start: 20221229, end: 20221229
  2. XYLOCAINE [Concomitant]
     Active Substance: LIDOCAINE HYDROCHLORIDE
     Indication: Tenosynovitis
     Dosage: ONCE ONLY, LOCAL INJECTION IN TENDON SHEATH
     Route: 050
     Dates: start: 20221229, end: 20221229

REACTIONS (1)
  - Haemorrhage subcutaneous [Recovered/Resolved]

NARRATIVE: CASE EVENT DATE: 20230422
